FAERS Safety Report 5819780-3 (Version None)
Quarter: 2008Q3

REPORT INFORMATION
  Report Type: 
  Country: None (occurrence: None)
  Receive Date: 20080723
  Receipt Date: 20080711
  Transmission Date: 20090109
  Serious: Yes (Other)
  Sender: FDA-Public Use
  Company Number: BR-PFIZER INC-2008059025

PATIENT
  Sex: Female

DRUGS (3)
  1. DEPO-PROVERA SUSPENSION/INJ [Suspect]
     Indication: CONTRACEPTION
     Route: 030
     Dates: start: 20071201, end: 20071201
  2. DEPO-PROVERA SUSPENSION/INJ [Suspect]
     Indication: UTERINE HAEMORRHAGE
     Route: 030
     Dates: start: 20080605, end: 20080605
  3. BEROTEC [Concomitant]
     Route: 065

REACTIONS (4)
  - ABDOMINAL DISTENSION [None]
  - DIZZINESS [None]
  - FLUID RETENTION [None]
  - PNEUMONIA [None]
